FAERS Safety Report 8173761-6 (Version None)
Quarter: 2012Q1

REPORT INFORMATION
  Report Type: 
  Country: None (occurrence: None)
  Receive Date: 20120229
  Receipt Date: 20120222
  Transmission Date: 20120608
  Serious: Yes (Death, Other)
  Sender: FDA-Public Use
  Company Number: JP-SANOFI-AVENTIS-2010SA004042

PATIENT
  Age: 60 Year
  Sex: Male
  Weight: 76 kg

DRUGS (5)
  1. FLUOROURACIL [Concomitant]
     Route: 040
     Dates: start: 20091221, end: 20091221
  2. AVASTIN [Suspect]
     Indication: COLON CANCER
     Dosage: DOSE: 380 MG/BODY
     Route: 041
     Dates: start: 20091221, end: 20091221
  3. LEVOLEUCOVORIN CALCIUM [Concomitant]
     Indication: COLON CANCER
     Route: 041
     Dates: start: 20091221, end: 20091221
  4. FLUOROURACIL [Concomitant]
     Indication: COLON CANCER
     Route: 041
     Dates: start: 20091221, end: 20091221
  5. OXALIPLATIN [Suspect]
     Indication: COLON CANCER
     Dosage: DOSE: 160 MG/BODY (83.8 MG/M2)
     Route: 041
     Dates: start: 20091221, end: 20091221

REACTIONS (3)
  - WHITE BLOOD CELL COUNT DECREASED [None]
  - NEUTROPHIL COUNT DECREASED [None]
  - TUMOUR HAEMORRHAGE [None]
